FAERS Safety Report 17424096 (Version 2)
Quarter: 2020Q2

REPORT INFORMATION
  Report Type: Spontaneous
  Country: US (occurrence: US)
  Receive Date: 20200217
  Receipt Date: 20200422
  Transmission Date: 20200713
  Serious: Yes (Other)
  Sender: FDA-Public Use
  Company Number: US-DRREDDYS-USA/USA/20/0119638

PATIENT
  Sex: Male

DRUGS (13)
  1. CYTOXAN [Suspect]
     Active Substance: CYCLOPHOSPHAMIDE
     Dosage: D1, D8, D15
  2. BORTEZOMIB. [Suspect]
     Active Substance: BORTEZOMIB
     Dosage: CYCLE 1: DOSE 1.5 MG AT DAY 1, DAY 8, DAY 15; CYCLE 2: DOSE 1.5 MG AT DAY 1, DAY 8, DAY 15; CYCLE 3:
  3. TADALAFIL. [Concomitant]
     Active Substance: TADALAFIL
     Indication: PULMONARY ARTERIAL HYPERTENSION
  4. LASIX [Concomitant]
     Active Substance: FUROSEMIDE
     Indication: PULMONARY ARTERIAL HYPERTENSION
  5. DEXAMETHASONE SODIUM PHOSPHATE. [Suspect]
     Active Substance: DEXAMETHASONE SODIUM PHOSPHATE
     Indication: PLASMA CELL MYELOMA
     Dosage: 4 WEEKS PER CYCLE, TOTLA 9CYCLES
     Route: 048
  6. CYTOXAN [Suspect]
     Active Substance: CYCLOPHOSPHAMIDE
     Dosage: D1, D8, D15
  7. AMBRISENTAN [Concomitant]
     Active Substance: AMBRISENTAN
     Indication: PULMONARY ARTERIAL HYPERTENSION
  8. IMMUNOGLOBULIN G 40 G/ML [Concomitant]
     Indication: LICHEN MYXOEDEMATOSUS
     Route: 042
  9. CYTOXAN [Suspect]
     Active Substance: CYCLOPHOSPHAMIDE
     Indication: PLASMA CELL MYELOMA
     Dosage: D1, D8, D15
  10. AMBRISENTAN [Concomitant]
     Active Substance: AMBRISENTAN
  11. CYTOXAN [Suspect]
     Active Substance: CYCLOPHOSPHAMIDE
     Dosage: D1, D8, D15
  12. CYTOXAN [Suspect]
     Active Substance: CYCLOPHOSPHAMIDE
     Dosage: D1, D8, D15
  13. BORTEZOMIB. [Suspect]
     Active Substance: BORTEZOMIB
     Indication: PLASMA CELL MYELOMA
     Dosage: 4 WEEKS PER CYCLE

REACTIONS (1)
  - Pancytopenia [Unknown]
